FAERS Safety Report 7479891-6 (Version None)
Quarter: 2011Q2

REPORT INFORMATION
  Report Type: 
  Country: None (occurrence: None)
  Receive Date: 20110516
  Receipt Date: 20110510
  Transmission Date: 20111010
  Serious: Yes (Other)
  Sender: FDA-Public Use
  Company Number: US-BRISTOL-MYERS SQUIBB COMPANY-15731623

PATIENT
  Sex: Female

DRUGS (7)
  1. COZAAR [Concomitant]
  2. WATER [Concomitant]
     Indication: THYROIDECTOMY
     Dosage: A  WATER PILL
  3. VITAMIN TAB [Concomitant]
  4. COUMADIN [Suspect]
     Indication: HEART VALVE REPLACEMENT
     Dates: start: 19900101
  5. PLAVIX [Concomitant]
  6. EYE DROPS [Concomitant]
  7. POTASSIUM [Concomitant]

REACTIONS (2)
  - INTERNATIONAL NORMALISED RATIO ABNORMAL [None]
  - TRANSIENT ISCHAEMIC ATTACK [None]
